FAERS Safety Report 5803096-5 (Version None)
Quarter: 2008Q2

REPORT INFORMATION
  Report Type: 
  Country: None (occurrence: None)
  Receive Date: 20080626
  Receipt Date: 20070802
  Transmission Date: 20081010
  Serious: Yes (Hospitalization)
  Sender: FDA-Public Use
  Company Number: VISP-PR-0707S-0317

PATIENT
  Age: 58 Year
  Sex: Male

DRUGS (5)
  1. VISIPAQUE [Suspect]
     Indication: ANGINA PECTORIS
     Dosage: 100 ML, SINGLE DOSE, I.A.
     Route: 013
     Dates: start: 20070129, end: 20070129
  2. MIDAZOLAM HCL [Concomitant]
  3. FENTANYL-25 [Concomitant]
  4. HEPARIN [Concomitant]
  5. GLYCERYL TRINITRATE (NITROGLYCERIN) [Concomitant]

REACTIONS (1)
  - NEPHROPATHY TOXIC [None]
